FAERS Safety Report 10724917 (Version 1)
Quarter: 2015Q1

REPORT INFORMATION
  Report Type: Spontaneous
  Country: US (occurrence: US)
  Receive Date: 20150120
  Receipt Date: 20150120
  Transmission Date: 20150721
  Serious: No
  Sender: FDA-Public Use
  Company Number: US-GLAXOSMITHKLINE-US2014GSK047503

PATIENT
  Sex: Female

DRUGS (2)
  1. VENTOLIN [Suspect]
     Active Substance: ALBUTEROL SULFATE
     Indication: COUGH
     Dosage: 4 DF, PRN
     Route: 055
  2. QVAR INHALATIONAL POWDER [Concomitant]

REACTIONS (2)
  - Drug administration error [Not Recovered/Not Resolved]
  - Overdose [Not Recovered/Not Resolved]
